FAERS Safety Report 19740884 (Version 1)
Quarter: 2021Q3

REPORT INFORMATION
  Report Type: Spontaneous
  Country: FR (occurrence: FR)
  Receive Date: 20210825
  Receipt Date: 20210825
  Transmission Date: 20211014
  Serious: Yes (Other)
  Sender: FDA-Public Use
  Company Number: FR-AUROBINDO-AUR-APL-2021-026713

PATIENT
  Age: 33 Year
  Sex: Female

DRUGS (4)
  1. TRAMADOL PROLONGED?RELEASE CAPSULE, HARD [Suspect]
     Active Substance: TRAMADOL
     Indication: BACK PAIN
     Dosage: UNK
     Route: 048
     Dates: start: 20210422, end: 20210607
  2. TOPALGIC (TRAMADOL HYDROCHLORIDE) [Suspect]
     Active Substance: TRAMADOL HYDROCHLORIDE
     Indication: BACK PAIN
     Dosage: UNK
     Route: 065
  3. TRAMADOL PROLONGED?RELEASE CAPSULE, HARD [Suspect]
     Active Substance: TRAMADOL
     Dosage: UNK
     Route: 065
     Dates: start: 202106
  4. TRAMADOL PROLONGED?RELEASE CAPSULE, HARD [Suspect]
     Active Substance: TRAMADOL
     Dosage: 200 MILLIGRAM
     Route: 065

REACTIONS (10)
  - Hypoaesthesia [Recovered/Resolved]
  - Joint swelling [Recovered/Resolved]
  - Product availability issue [Unknown]
  - Paraesthesia [Recovered/Resolved]
  - Influenza like illness [Recovered/Resolved]
  - Urinary retention [Recovered/Resolved]
  - Fall [Recovered/Resolved]
  - Withdrawal syndrome [Recovered/Resolved]
  - Therapeutic product effect incomplete [Unknown]
  - Myalgia [Recovered/Resolved]

NARRATIVE: CASE EVENT DATE: 202104
